FAERS Safety Report 13254611 (Version 1)
Quarter: 2017Q1

REPORT INFORMATION
  Report Type: Spontaneous
  Country: FR (occurrence: FR)
  Receive Date: 20170221
  Receipt Date: 20170221
  Transmission Date: 20170428
  Serious: Yes (Death, Other)
  Sender: FDA-Public Use
  Company Number: FR-ALEXION-A201701324

PATIENT
  Age: 38 Year
  Sex: Female

DRUGS (4)
  1. SOLIRIS [Suspect]
     Active Substance: ECULIZUMAB
     Indication: TRANSPLANT REJECTION
     Dosage: UNK UNK, QW
     Route: 042
     Dates: start: 201504
  2. MMF [Concomitant]
     Active Substance: MYCOPHENOLATE MOFETIL
     Indication: IMMUNOSUPPRESSION
     Dosage: 1.5 MG, QD
     Route: 065
  3. SOLIRIS [Suspect]
     Active Substance: ECULIZUMAB
     Indication: OFF LABEL USE
  4. TACROLIMUS. [Concomitant]
     Active Substance: TACROLIMUS
     Indication: IMMUNOSUPPRESSION
     Dosage: 3 MG, QD
     Route: 065

REACTIONS (9)
  - Small cell lung cancer recurrent [Fatal]
  - Small cell lung cancer [Unknown]
  - Dyskinesia [Unknown]
  - Necrosis [Unknown]
  - Deformity [Unknown]
  - Off label use [Unknown]
  - Soft tissue disorder [Unknown]
  - Dysarthria [Unknown]
  - Graft thrombosis [Unknown]
